FAERS Safety Report 4777530-6 (Version None)
Quarter: 2005Q3

REPORT INFORMATION
  Report Type: 
  Country: None (occurrence: None)
  Receive Date: 20050921
  Receipt Date: 20050908
  Transmission Date: 20060218
  Serious: Yes (Hospitalization)
  Sender: FDA-Public Use
  Company Number: 2002090637IT

PATIENT
  Age: 55 Year
  Sex: Male

DRUGS (7)
  1. ADRIBLASTINA                (DOXORUBICIN HYDROCHLORIDE) [Suspect]
     Indication: NON-HODGKIN'S LYMPHOMA
  2. PREDNISONE [Suspect]
     Indication: NON-HODGKIN'S LYMPHOMA
  3. RITUXIMAB (RITUXIMAB) [Concomitant]
  4. METHOTREXATE [Suspect]
     Indication: NON-HODGKIN'S LYMPHOMA
  5. VINCRISTINA (VINCRISTINE SULFATE) [Suspect]
     Indication: NON-HODGKIN'S LYMPHOMA
  6. BLEOMYCIN [Suspect]
     Indication: NON-HODGKIN'S LYMPHOMA
  7. CYCLOPHOSPHAMIDE [Suspect]
     Indication: NON-HODGKIN'S LYMPHOMA

REACTIONS (2)
  - BRONCHOPNEUMONIA [None]
  - PLEUROPERICARDITIS [None]
